FAERS Safety Report 8580403-4 (Version None)
Quarter: 2012Q3

REPORT INFORMATION
  Report Type: 
  Country: None (occurrence: None)
  Receive Date: 20120808
  Receipt Date: 20120725
  Transmission Date: 20120928
  Serious: Yes (Other)
  Sender: FDA-Public Use
  Company Number: CH-WATSON-2012-08569

PATIENT
  Age: 42 Year
  Sex: Female

DRUGS (1)
  1. TOPIRAMATE [Suspect]
     Indication: MIGRAINE
     Dosage: 400 MG, DAILY
     Route: 065

REACTIONS (1)
  - RENAL TUBULAR ACIDOSIS [None]
